FAERS Safety Report 24421274 (Version 3)
Quarter: 2025Q4

REPORT INFORMATION
  Report Type: Spontaneous
  Country: EU (occurrence: EU)
  Receive Date: 20241010
  Receipt Date: 20251015
  Transmission Date: 20260117
  Serious: Yes (Life-Threatening, Hospitalization, Other)
  Sender: SANDOZ
  Company Number: None

PATIENT
  Age: 5 Year
  Sex: Male

DRUGS (36)
  1. MERCAPTOPURINE [Suspect]
     Active Substance: MERCAPTOPURINE
     Indication: B precursor type acute leukaemia
     Dosage: 1.5 MG/KG DAILY; MAINTENANCE
     Route: 065
  2. MERCAPTOPURINE [Suspect]
     Active Substance: MERCAPTOPURINE
     Dosage: 1.5 MG/KG DAILY; MAINTENANCE
     Route: 065
     Dates: start: 2014, end: 2014
  3. AMBISOME [Suspect]
     Active Substance: AMPHOTERICIN B
     Indication: Pulmonary mucormycosis
     Dosage: 1 MG/KG QD
     Route: 065
  4. AMBISOME [Suspect]
     Active Substance: AMPHOTERICIN B
     Dosage: 10 MG/KG QD
     Route: 065
  5. CYCLOPHOSPHAMIDE [Suspect]
     Active Substance: CYCLOPHOSPHAMIDE
     Indication: B precursor type acute leukaemia
     Dosage: UNK
     Route: 065
     Dates: start: 2015, end: 2015
  6. CYCLOPHOSPHAMIDE [Suspect]
     Active Substance: CYCLOPHOSPHAMIDE
     Dosage: UNK, BLOCK IB
     Route: 065
  7. CYTARABINE [Suspect]
     Active Substance: CYTARABINE
     Indication: B precursor type acute leukaemia
     Dosage: UNK
     Route: 065
     Dates: start: 2015, end: 2015
  8. CYTARABINE [Suspect]
     Active Substance: CYTARABINE
     Dosage: UNK, BLOCK IB
     Route: 065
  9. DECADRON (DEXAMETHASONE SODIUM PHOSPHATE) [Suspect]
     Active Substance: DEXAMETHASONE SODIUM PHOSPHATE
     Indication: B precursor type acute leukaemia
     Dosage: 10 MG/M2 DAILY;
     Route: 065
  10. DECADRON (DEXAMETHASONE SODIUM PHOSPHATE) [Suspect]
     Active Substance: DEXAMETHASONE SODIUM PHOSPHATE
     Dosage: 10 MG/M2, QD, 3 WEEKS OF RESTARTED STEROID THERAPY IN PROTOCOL IIA WITH DEXAMETHASONE (10 MG/M2/DAY)
     Route: 065
     Dates: start: 2015, end: 2015
  11. DECADRON (DEXAMETHASONE SODIUM PHOSPHATE) [Suspect]
     Active Substance: DEXAMETHASONE SODIUM PHOSPHATE
     Dosage: 10 MG/M2, QD, 3 WEEKS OF RESTARTED STEROID THERAPY IN PROTOCOL IIA WITH DEXAMETHASONE (10 MG/M2/DAY)
     Route: 065
     Dates: start: 201501, end: 201502
  12. DOXORUBICIN HYDROCHLORIDE [Suspect]
     Active Substance: DOXORUBICIN HYDROCHLORIDE
     Indication: B precursor type acute leukaemia
     Dosage: UNK
     Route: 065
     Dates: start: 2015, end: 2015
  13. DOXORUBICIN HYDROCHLORIDE [Suspect]
     Active Substance: DOXORUBICIN HYDROCHLORIDE
     Dosage: UNK, BLOCK IIA
     Route: 065
     Dates: start: 201501, end: 201501
  14. DAUNORUBICIN [Suspect]
     Active Substance: DAUNORUBICIN
     Dosage: 4 DOSES, BLOCK IA
     Route: 065
     Dates: start: 201408, end: 2014
  15. DAUNORUBICIN [Suspect]
     Active Substance: DAUNORUBICIN
     Indication: B precursor type acute leukaemia
     Dosage: UNK
     Route: 065
  16. METHOTREXATE [Suspect]
     Active Substance: METHOTREXATE
     Dosage: MAINTENANCE: 0.5-0.7 MG/KG ONCE WEEKLY
     Route: 037
     Dates: start: 201408
  17. METHOTREXATE [Suspect]
     Active Substance: METHOTREXATE
     Indication: B precursor type acute leukaemia
     Dosage: MAINTENANCE: 0.5-0.7 MG/KG ONCE WEEKLY
     Route: 065
  18. METHOTREXATE [Suspect]
     Active Substance: METHOTREXATE
     Dosage: UNK
     Route: 065
     Dates: start: 2015, end: 2015
  19. METHOTREXATE [Suspect]
     Active Substance: METHOTREXATE
     Dosage: UNK, BLOCK IB
     Route: 037
  20. METHOTREXATE [Suspect]
     Active Substance: METHOTREXATE
     Dosage: UNK, BLOCK IIA
     Route: 037
     Dates: start: 201502
  21. PEGASPARGASE [Suspect]
     Active Substance: PEGASPARGASE
     Dosage: 2500 U/M2, DAY 12 AND DA8 OF BLOCK IIA
     Route: 042
     Dates: start: 201501, end: 201501
  22. PEGASPARGASE [Suspect]
     Active Substance: PEGASPARGASE
     Dosage: 2500 U/M2, DAY 12 AND DAY 26 OF BLOCK  IA
     Route: 042
     Dates: start: 201408, end: 201408
  23. PEGASPARGASE [Suspect]
     Active Substance: PEGASPARGASE
     Indication: B precursor type acute leukaemia
     Dosage: UNK
     Route: 065
  24. PREDNISONE [Suspect]
     Active Substance: PREDNISONE
     Indication: B precursor type acute leukaemia
     Dosage: UNK
     Route: 065
  25. PREDNISONE [Suspect]
     Active Substance: PREDNISONE
     Dosage: UNK
     Route: 065
     Dates: start: 201408, end: 2014
  26. THIOGUANINE [Suspect]
     Active Substance: THIOGUANINE
     Indication: B precursor type acute leukaemia
     Dosage: UNK
     Route: 065
     Dates: start: 2015, end: 2015
  27. THIOGUANINE [Suspect]
     Active Substance: THIOGUANINE
     Dosage: UNK
     Route: 065
  28. VINCRISTINE [Suspect]
     Active Substance: VINCRISTINE
     Indication: B precursor type acute leukaemia
     Dosage: UNK
     Route: 065
  29. VINCRISTINE [Suspect]
     Active Substance: VINCRISTINE
     Dosage: UNK
     Route: 065
     Dates: start: 2015, end: 2015
  30. VINCRISTINE [Suspect]
     Active Substance: VINCRISTINE
     Dosage: UNK, BLOCK IA
     Route: 065
     Dates: start: 201408, end: 2014
  31. VINCRISTINE [Suspect]
     Active Substance: VINCRISTINE
     Dosage: UNK, BLOCK IA
     Route: 065
     Dates: end: 2014
  32. VINCRISTINE [Suspect]
     Active Substance: VINCRISTINE
     Dosage: UNK, BLOCK IIA
     Route: 065
     Dates: start: 201501, end: 2015
  33. AMPHOTERICIN B [Concomitant]
     Active Substance: AMPHOTERICIN B
     Indication: Gastric infection
     Dosage: UNK
     Route: 065
     Dates: start: 201408, end: 201612
  34. CASPOFUNGIN [Concomitant]
     Active Substance: CASPOFUNGIN
     Indication: Antifungal treatment
     Dosage: UNK
     Route: 065
  35. POSACONAZOLE [Concomitant]
     Active Substance: POSACONAZOLE
     Indication: Pulmonary mucormycosis
     Dosage: 15 MG/KG DAILY;
     Route: 065
  36. VORICONAZOLE [Concomitant]
     Active Substance: VORICONAZOLE
     Indication: Pulmonary mucormycosis
     Dosage: 8 MG/KG DAILY;
     Route: 065

REACTIONS (3)
  - Aspergillus infection [Recovering/Resolving]
  - Pulmonary mucormycosis [Recovering/Resolving]
  - Hypokalaemia [Unknown]

NARRATIVE: CASE EVENT DATE: 20150101
